FAERS Safety Report 4717394-X (Version None)
Quarter: 2005Q3

REPORT INFORMATION
  Report Type: 
  Country: None (occurrence: None)
  Receive Date: 20050711
  Receipt Date: 20050428
  Transmission Date: 20060218
  Serious: No
  Sender: FDA-Public Use
  Company Number: A03200501260

PATIENT
  Age: 81 Year
  Sex: Male

DRUGS (3)
  1. UROXATRAL [Suspect]
     Indication: BENIGN PROSTATIC HYPERPLASIA
     Dosage: 10 MG ONCE - ORAL
     Route: 048
     Dates: start: 20050426, end: 20050426
  2. UROXATRAL [Suspect]
     Indication: POLLAKIURIA
     Dosage: 10 MG ONCE - ORAL
     Route: 048
     Dates: start: 20050426, end: 20050426
  3. UROXATRAL [Suspect]
     Indication: URINARY INCONTINENCE
     Dosage: 10 MG ONCE - ORAL
     Route: 048
     Dates: start: 20050426, end: 20050426

REACTIONS (1)
  - PHARYNGEAL OEDEMA [None]
